FAERS Safety Report 24444345 (Version 2)
Quarter: 2024Q4

REPORT INFORMATION
  Report Type: Report from Study
  Country: US (occurrence: US)
  Receive Date: 20241016
  Receipt Date: 20241017
  Transmission Date: 20250114
  Serious: No
  Sender: ROCHE
  Company Number: US-ROCHE-2728308

PATIENT
  Age: 51 Year
  Sex: Female

DRUGS (2)
  1. RITUXAN [Suspect]
     Active Substance: RITUXIMAB
     Indication: Neuromyelitis optica spectrum disorder
     Dosage: DATE OF TREATMENT : 22/OCT/2021,23-JUN-2022, 30/MAR/2023? FREQUENCY TEXT:26-MAR-2022
     Route: 065
  2. RITUXAN [Suspect]
     Active Substance: RITUXIMAB
     Indication: Pneumothorax spontaneous

REACTIONS (2)
  - Off label use [Unknown]
  - No adverse event [Unknown]
